FAERS Safety Report 8756412 (Version 4)
Quarter: 2013Q2

REPORT INFORMATION
  Report Type: Spontaneous
  Country: US (occurrence: US)
  Receive Date: 20120828
  Receipt Date: 20130503
  Transmission Date: 20140414
  Serious: Yes (Other)
  Sender: FDA-Public Use
  Company Number: US-MERCK-1208USA007930

PATIENT
  Age: 60 Year
  Sex: Female

DRUGS (5)
  1. PEGINTRON [Suspect]
     Indication: HEPATITIS C
     Dosage: UNK
     Dates: start: 20120522, end: 20130427
  2. REBETOL [Suspect]
     Indication: HEPATITIS C
     Dosage: UNK
     Dates: start: 20120522, end: 20130502
  3. VICTRELIS [Suspect]
     Indication: HEPATITIS C
     Dosage: UNK
     Dates: start: 20120628, end: 20130502
  4. JANUMET [Concomitant]
     Indication: DIABETES MELLITUS
     Dosage: UNK, BID
  5. LISINOPRIL [Concomitant]
     Indication: HYPERTENSION
     Dosage: UNK

REACTIONS (21)
  - Anaemia [Unknown]
  - Anaemia [Unknown]
  - Anaemia [Unknown]
  - Anaemia [Unknown]
  - Fatigue [Unknown]
  - Pyrexia [Recovered/Resolved]
  - Antibiotic therapy [Recovered/Resolved]
  - Headache [Recovered/Resolved]
  - Epistaxis [Recovered/Resolved]
  - Sinus disorder [Recovered/Resolved]
  - Skin discolouration [Not Recovered/Not Resolved]
  - Disturbance in attention [Unknown]
  - Amnesia [Unknown]
  - Confusional state [Unknown]
  - Nausea [Recovered/Resolved]
  - Somnolence [Recovered/Resolved]
  - Inappropriate schedule of drug administration [Unknown]
  - Fatigue [Unknown]
  - Drug ineffective [Unknown]
  - Malaise [Unknown]
  - Somnolence [Unknown]
